FAERS Safety Report 7272182-8 (Version None)
Quarter: 2011Q1

REPORT INFORMATION
  Report Type: 
  Country: None (occurrence: None)
  Receive Date: 20110203
  Receipt Date: 20110119
  Transmission Date: 20110831
  Serious: Yes (Other)
  Sender: FDA-Public Use
  Company Number: PHHY2011GB04442

PATIENT
  Age: 67 Year
  Sex: Female
  Weight: 55.1 kg

DRUGS (7)
  1. ASPIRIN [Concomitant]
  2. BEZAFIBRATE [Concomitant]
     Indication: LIPIDS INCREASED
     Route: 048
  3. CALCICHEW [Concomitant]
  4. OMEPRAZOLE [Concomitant]
  5. CLONIDINE [Suspect]
     Indication: HOT FLUSH
     Dosage: 25 UG, BID
     Route: 048
     Dates: start: 20040101, end: 20110101
  6. RISEDRONATE SODIUM [Concomitant]
     Indication: OSTEOPOROSIS
     Route: 048
  7. EZETIMIBE [Concomitant]
     Indication: LIPIDS INCREASED
     Route: 048

REACTIONS (2)
  - HAEMOLYTIC ANAEMIA [None]
  - HAEMOLYSIS [None]
